FAERS Safety Report 24612567 (Version 1)
Quarter: 2024Q4

REPORT INFORMATION
  Report Type: Other
  Country: AU (occurrence: AU)
  Receive Date: 20241113
  Receipt Date: 20241113
  Transmission Date: 20250115
  Serious: Yes (Other)
  Sender: LUPIN
  Company Number: AU-LUPIN PHARMACEUTICALS INC.-2024-10904

PATIENT
  Age: 74 Year
  Sex: Female

DRUGS (1)
  1. CELECOXIB [Suspect]
     Active Substance: CELECOXIB
     Indication: Product used for unknown indication
     Dosage: UNK
     Route: 065

REACTIONS (5)
  - Hypotension [Unknown]
  - Rash erythematous [Unknown]
  - Rash pruritic [Unknown]
  - Tachycardia [Unknown]
  - Throat tightness [Unknown]
